FAERS Safety Report 18068664 (Version 2)
Quarter: 2020Q3

REPORT INFORMATION
  Report Type: Spontaneous
  Country: AT (occurrence: AT)
  Receive Date: 20200724
  Receipt Date: 20200812
  Transmission Date: 20201103
  Serious: Yes (Other)
  Sender: FDA-Public Use
  Company Number: AT-ELI_LILLY_AND_COMPANY-AT202007008654

PATIENT
  Age: 49 Year
  Sex: Female

DRUGS (5)
  1. GALCANEZUMAB [Suspect]
     Active Substance: GALCANEZUMAB
     Indication: PRODUCT USED FOR UNKNOWN INDICATION
     Dosage: 01 DOSAGE FORM, UNKNOWN
     Route: 065
     Dates: start: 202006
  2. AIMOVIG [Suspect]
     Active Substance: ERENUMAB-AOOE
     Dosage: 140 MG, UNKNOWN
     Route: 065
     Dates: start: 201912, end: 202001
  3. AIMOVIG [Suspect]
     Active Substance: ERENUMAB-AOOE
     Dosage: 70 MG, UNKNOWN
     Route: 065
     Dates: start: 202001, end: 202005
  4. AIMOVIG [Suspect]
     Active Substance: ERENUMAB-AOOE
     Dosage: 70 MG, UNKNOWN
     Route: 065
     Dates: start: 201909, end: 201912
  5. AIMOVIG [Suspect]
     Active Substance: ERENUMAB-AOOE
     Indication: MIGRAINE
     Dosage: 70 MG, UNKNOWN
     Route: 065
     Dates: start: 201809, end: 201906

REACTIONS (7)
  - Nausea [Unknown]
  - Dizziness [Unknown]
  - Skin burning sensation [Recovered/Resolved]
  - Hypotension [Unknown]
  - Vomiting [Unknown]
  - Migraine with aura [Unknown]
  - Injection site pain [Unknown]

NARRATIVE: CASE EVENT DATE: 2020
